FAERS Safety Report 14910972 (Version 3)
Quarter: 2018Q2

REPORT INFORMATION
  Report Type: Spontaneous
  Country: NO (occurrence: CH)
  Receive Date: 20180517
  Receipt Date: 20180606
  Transmission Date: 20180711
  Serious: Yes (Congenital Anomaly, Other)
  Sender: FDA-Public Use
  Company Number: NO-AMGEN-NORSP2018067083

PATIENT
  Sex: Male

DRUGS (1)
  1. ENBREL [Suspect]
     Active Substance: ETANERCEPT
     Indication: EXPOSURE DURING PREGNANCY
     Dosage: UNK
     Route: 064

REACTIONS (2)
  - Maternal exposure during pregnancy [Unknown]
  - Ventricular septal defect [Unknown]
